FAERS Safety Report 25957211 (Version 1)
Quarter: 2025Q4

REPORT INFORMATION
  Report Type: Spontaneous
  Country: CN (occurrence: CN)
  Receive Date: 20251024
  Receipt Date: 20251024
  Transmission Date: 20260118
  Serious: Yes (Other)
  Sender: PFIZER
  Company Number: CN-PFIZER INC-PV202500124787

PATIENT
  Age: 88 Year
  Sex: Female

DRUGS (4)
  1. AXITINIB [Suspect]
     Active Substance: AXITINIB
     Indication: Renal neoplasm
     Dosage: 5 MG, 2X/DAY
     Route: 048
     Dates: start: 20240920, end: 20250830
  2. AXITINIB [Suspect]
     Active Substance: AXITINIB
     Indication: Renal cancer
  3. TORIPALIMAB [Suspect]
     Active Substance: TORIPALIMAB
     Indication: Renal neoplasm
     Dosage: 240 MG, WEEKLY
     Route: 041
     Dates: start: 20240920, end: 20250830
  4. TORIPALIMAB [Suspect]
     Active Substance: TORIPALIMAB
     Indication: Renal cancer

REACTIONS (7)
  - Epidermolysis bullosa [Recovering/Resolving]
  - Drug eruption [Recovering/Resolving]
  - Pruritus [Recovering/Resolving]
  - Pyrexia [Recovering/Resolving]
  - Dysuria [Recovering/Resolving]
  - Erythema [Unknown]
  - Rash [Unknown]

NARRATIVE: CASE EVENT DATE: 20250101
